FAERS Safety Report 20100090 (Version 3)
Quarter: 2022Q1

REPORT INFORMATION
  Report Type: Spontaneous
  Country: AU (occurrence: None)
  Receive Date: 20211123
  Receipt Date: 20220108
  Transmission Date: 20220423
  Serious: Yes (Other)
  Sender: FDA-Public Use
  Company Number: AU-ROCHE-2686662

PATIENT
  Age: 36 Year
  Sex: Female
  Weight: 135 kg

DRUGS (5)
  1. PERTUZUMAB [Suspect]
     Active Substance: PERTUZUMAB
     Indication: Breast cancer
     Route: 042
     Dates: start: 20190808, end: 20190919
  2. TRASTUZUMAB [Suspect]
     Active Substance: TRASTUZUMAB
     Indication: Breast cancer
     Route: 065
     Dates: start: 20190808, end: 20200114
  3. RAMIPRIL [Concomitant]
     Active Substance: RAMIPRIL
     Indication: Left ventricular dysfunction
     Route: 048
     Dates: start: 20190829
  4. BISOPROLOL [Concomitant]
     Active Substance: BISOPROLOL
     Indication: Left ventricular dysfunction
     Route: 048
     Dates: start: 20190829
  5. FUROSEMIDE [Concomitant]
     Active Substance: FUROSEMIDE
     Indication: Left ventricular dysfunction
     Route: 048
     Dates: start: 20190829

REACTIONS (1)
  - Left ventricular dysfunction [Recovered/Resolved]

NARRATIVE: CASE EVENT DATE: 20190919
